FAERS Safety Report 6616382-6 (Version None)
Quarter: 2010Q1

REPORT INFORMATION
  Report Type: 
  Country: None (occurrence: None)
  Receive Date: 20100305
  Receipt Date: 20100226
  Transmission Date: 20100710
  Serious: Yes (Other)
  Sender: FDA-Public Use
  Company Number: BE-JNJFOC-20091005204

PATIENT
  Age: 45 Year
  Sex: Male

DRUGS (4)
  1. RISPERDAL [Suspect]
     Indication: DRUG USE FOR UNKNOWN INDICATION
     Route: 065
  2. ZESTRIL [Concomitant]
     Indication: HYPERTENSION
     Route: 048
  3. PAROXETINE HCL [Concomitant]
     Indication: ANXIETY
     Route: 048
  4. STAURODORM (FLURAZEPAM) [Concomitant]
     Indication: INSOMNIA
     Route: 048

REACTIONS (5)
  - AGGRESSION [None]
  - ALCOHOLISM [None]
  - BLOOD CREATINE PHOSPHOKINASE INCREASED [None]
  - PARANOIA [None]
  - PSYCHOTIC DISORDER [None]
